FAERS Safety Report 8175900-X (Version None)
Quarter: 2012Q1

REPORT INFORMATION
  Report Type: 
  Country: None (occurrence: None)
  Receive Date: 20120228
  Receipt Date: 20120215
  Transmission Date: 20120608
  Serious: Yes (Other)
  Sender: FDA-Public Use
  Company Number: 1000028582

PATIENT
  Age: 33 Year
  Sex: Male

DRUGS (5)
  1. LEXAPRO [Suspect]
     Indication: DEPRESSION
     Dosage: 20 MG (20 MG, 1 IN 1 D),ORAL
     Route: 048
     Dates: start: 20111004, end: 20120124
  2. ABILIFY(ARIPIPRAZOLE)(ARIPIPRAZOLE) [Concomitant]
  3. FLUNITRAZEPAM (FLUNITRAZEPAM) (FLUNITRAZEPAM) [Concomitant]
  4. MEILAX (ETHYL LOFLAZEPATE)(ETHYL LOFLAZEPATE) [Concomitant]
  5. LANSOPRAZOLE [Concomitant]

REACTIONS (1)
  - BLOOD TRIGLYCERIDES INCREASED [None]
